FAERS Safety Report 4729893-5 (Version None)
Quarter: 2005Q3

REPORT INFORMATION
  Report Type: 
  Country: None (occurrence: None)
  Receive Date: 20050728
  Receipt Date: 20050714
  Transmission Date: 20060218
  Serious: Yes (Life-Threatening, Hospitalization)
  Sender: FDA-Public Use
  Company Number: 105987ISR

PATIENT
  Age: 45 Year
  Sex: Female

DRUGS (1)
  1. GLATIRAMER ACETATE [Suspect]
     Indication: MULTIPLE SCLEROSIS
     Dosage: 20 MILLIGRAM SUBCUTANEOUS
     Route: 058
     Dates: start: 20040813, end: 20041226

REACTIONS (20)
  - ANXIETY [None]
  - ASTHENIA [None]
  - AUTONOMIC NERVOUS SYSTEM IMBALANCE [None]
  - BALANCE DISORDER [None]
  - BONE PAIN [None]
  - CHILLS [None]
  - DYSPNOEA [None]
  - EAR INFECTION [None]
  - ERYTHEMA [None]
  - FEAR [None]
  - FLUSHING [None]
  - HYPOAESTHESIA [None]
  - MORAXELLA INFECTION [None]
  - OPTIC ATROPHY [None]
  - PANIC ATTACK [None]
  - RETINAL VASCULAR DISORDER [None]
  - SUPRAVENTRICULAR EXTRASYSTOLES [None]
  - TACHYCARDIA [None]
  - VISUAL ACUITY REDUCED [None]
  - WHITE BLOOD CELLS URINE POSITIVE [None]
